FAERS Safety Report 21971070 (Version 1)
Quarter: 2023Q1

REPORT INFORMATION
  Report Type: Report from Study
  Country: US (occurrence: US)
  Receive Date: 20230209
  Receipt Date: 20230209
  Transmission Date: 20230418
  Serious: Yes (Other)
  Sender: FDA-Public Use
  Company Number: US-BEH-2023154939

PATIENT
  Age: 31 Year
  Sex: Female

DRUGS (1)
  1. PRIVIGEN [Suspect]
     Active Substance: HUMAN IMMUNOGLOBULIN G
     Indication: Dermatomyositis
     Dosage: UNK
     Route: 042
     Dates: start: 201601

REACTIONS (12)
  - Vein rupture [Unknown]
  - Contusion [Unknown]
  - Pain [Unknown]
  - Hypersensitivity [Unknown]
  - Injection site reaction [Unknown]
  - Nausea [Unknown]
  - Headache [Unknown]
  - Fatigue [Unknown]
  - Migraine [Unknown]
  - Malaise [Unknown]
  - No adverse event [Unknown]
  - Off label use [Unknown]
